FAERS Safety Report 7012863-4 (Version None)
Quarter: 2010Q3

REPORT INFORMATION
  Report Type: 
  Country: None (occurrence: None)
  Receive Date: 20100922
  Receipt Date: 20100913
  Transmission Date: 20110219
  Serious: Yes (Hospitalization, Disabling, Other)
  Sender: FDA-Public Use
  Company Number: 2010SP017471

PATIENT
  Age: 42 Year
  Sex: Female
  Weight: 72.5755 kg

DRUGS (6)
  1. NUVARING [Suspect]
     Indication: CONTRACEPTION
     Dates: start: 20070101, end: 20090101
  2. MOTRIN [Concomitant]
  3. LOTENSIN [Concomitant]
  4. HYDROCHLOROTHIAZIDE [Concomitant]
  5. ALBUTEROL [Concomitant]
  6. ASPIRIN [Concomitant]

REACTIONS (27)
  - AMNESIA [None]
  - ARRHYTHMIA [None]
  - ASTHMA [None]
  - ATRIAL FIBRILLATION [None]
  - BACK PAIN [None]
  - BRADYCARDIA [None]
  - CARDIAC MURMUR [None]
  - CAROTID ARTERY STENOSIS [None]
  - CEREBROVASCULAR ACCIDENT [None]
  - CHEST PAIN [None]
  - DERMAL CYST [None]
  - GALLBLADDER DISORDER [None]
  - HEADACHE [None]
  - HEART RATE IRREGULAR [None]
  - HYPERTENSION [None]
  - MIGRAINE [None]
  - MITRAL VALVE INCOMPETENCE [None]
  - MULTIPLE INJURIES [None]
  - NERVOUS SYSTEM DISORDER [None]
  - PALPITATIONS [None]
  - PARAKERATOSIS [None]
  - PULMONARY EMBOLISM [None]
  - SEBORRHOEIC DERMATITIS [None]
  - SINUS TACHYCARDIA [None]
  - TACHYCARDIA [None]
  - TRANSIENT ISCHAEMIC ATTACK [None]
  - VISION BLURRED [None]
